FAERS Safety Report 10657671 (Version 1)
Quarter: 2014Q4

REPORT INFORMATION
  Report Type: Spontaneous
  Country: US (occurrence: US)
  Receive Date: 20141217
  Receipt Date: 20141217
  Transmission Date: 20150529
  Serious: No
  Sender: FDA-Public Use
  Company Number: US-GLAXOSMITHKLINE-A1055187A

PATIENT

DRUGS (8)
  1. ZOMETA SOLUTION FOR INJECTION [Concomitant]
  2. IMODIUM ADVANCED TABLET [Concomitant]
  3. VOTRIENT [Suspect]
     Active Substance: PAZOPANIB HYDROCHLORIDE
     Indication: RENAL CELL CARCINOMA
     Dosage: 200 MG TABLETS
     Route: 048
  4. PANTOPRAZOLE TABLET [Concomitant]
  5. FENOFIBRATE CAPSULE [Concomitant]
  6. LISINOPRIL TABLET [Concomitant]
     Active Substance: LISINOPRIL
  7. VOTRIENT [Suspect]
     Active Substance: PAZOPANIB HYDROCHLORIDE
     Indication: METASTASES TO LUNG
  8. DOXAZOSIN TABLET [Concomitant]

REACTIONS (1)
  - Diarrhoea [Unknown]

NARRATIVE: CASE EVENT DATE: 20121101
